FAERS Safety Report 9298389 (Version 2)
Quarter: 2013Q2

REPORT INFORMATION
  Report Type: Spontaneous
  Country: US (occurrence: US)
  Receive Date: 20130520
  Receipt Date: 20130626
  Transmission Date: 20140414
  Serious: Yes (Other)
  Sender: FDA-Public Use
  Company Number: US-PFIZER INC-2013151598

PATIENT
  Sex: Female

DRUGS (2)
  1. LIPITOR [Suspect]
     Dosage: 40 MG, UNK
  2. ACCUPRIL [Suspect]
     Dosage: 40 MG, UNK

REACTIONS (4)
  - Road traffic accident [Unknown]
  - Spinal column injury [Unknown]
  - Thrombosis [Unknown]
  - Contusion [Unknown]
